FAERS Safety Report 20050850 (Version 1)
Quarter: 2021Q4

REPORT INFORMATION
  Report Type: Spontaneous
  Country: US (occurrence: US)
  Receive Date: 20211110
  Receipt Date: 20211110
  Transmission Date: 20220303
  Serious: Yes (Other)
  Sender: FDA-Public Use
  Company Number: US-JNJFOC-20211103573

PATIENT
  Age: 6 Decade
  Sex: Male

DRUGS (1)
  1. DARZALEX FASPRO [Suspect]
     Active Substance: DARATUMUMAB\HYALURONIDASE-FIHJ
     Indication: Plasma cell myeloma
     Dosage: LAST DOSE WAS ON 24-SEP-2021
     Route: 058
     Dates: start: 202101

REACTIONS (2)
  - Plasma cell myeloma [Unknown]
  - Blood creatinine increased [Unknown]
